FAERS Safety Report 25085054 (Version 1)
Quarter: 2025Q1

REPORT INFORMATION
  Report Type: Spontaneous
  Country: US (occurrence: None)
  Receive Date: 20250317
  Receipt Date: 20250317
  Transmission Date: 20250409
  Serious: No
  Sender: INCYTE
  Company Number: US-INCYTE CORPORATION-2025IN002557

PATIENT
  Age: 66 Year

DRUGS (1)
  1. JAKAFI [Suspect]
     Active Substance: RUXOLITINIB
     Indication: Acute myeloid leukaemia
     Dosage: 5 MILLIGRAM, BID

REACTIONS (4)
  - Muscle strain [Unknown]
  - Myalgia [Unknown]
  - Arthralgia [Unknown]
  - Off label use [Unknown]
